FAERS Safety Report 12294670 (Version 6)
Quarter: 2016Q3

REPORT INFORMATION
  Report Type: Report from Study
  Country: CA (occurrence: CA)
  Receive Date: 20160422
  Receipt Date: 20160729
  Transmission Date: 20161109
  Serious: Yes (Hospitalization, Other)
  Sender: FDA-Public Use
  Company Number: CA-ROCHE-1425651

PATIENT
  Age: 48 Year
  Sex: Female
  Weight: 72.64 kg

DRUGS (7)
  1. RITUXAN [Suspect]
     Active Substance: RITUXIMAB
     Indication: RHEUMATOID ARTHRITIS
     Route: 042
     Dates: start: 20140625
  2. METHYLPREDNISOLONE. [Concomitant]
     Active Substance: METHYLPREDNISOLONE
     Indication: PREMEDICATION
     Route: 042
     Dates: start: 20140625
  3. DIPHENHYDRAMINE HCL [Concomitant]
     Active Substance: DIPHENHYDRAMINE HYDROCHLORIDE
     Indication: PREMEDICATION
     Route: 048
     Dates: start: 20140625
  4. SYNTHROID [Concomitant]
     Active Substance: LEVOTHYROXINE SODIUM
  5. ACETAMINOPHEN. [Concomitant]
     Active Substance: ACETAMINOPHEN
     Indication: PREMEDICATION
     Route: 048
     Dates: start: 20140625
  6. ENBREL [Concomitant]
     Active Substance: ETANERCEPT
  7. ARAVA [Concomitant]
     Active Substance: LEFLUNOMIDE

REACTIONS (9)
  - Blood pressure increased [Unknown]
  - Weight decreased [Not Recovered/Not Resolved]
  - Infusion related reaction [Recovered/Resolved]
  - Arthropod bite [Unknown]
  - Localised infection [Recovered/Resolved]
  - Heart rate increased [Unknown]
  - Peripheral swelling [Not Recovered/Not Resolved]
  - Arthritis infective [Recovered/Resolved]
  - Oxygen saturation decreased [Unknown]

NARRATIVE: CASE EVENT DATE: 20140625
